FAERS Safety Report 9871378 (Version 1)
Quarter: 2014Q1

REPORT INFORMATION
  Report Type: Spontaneous
  Country: US (occurrence: None)
  Receive Date: 20140204
  Receipt Date: 20140204
  Transmission Date: 20141002
  Serious: No
  Sender: FDA-Public Use
  Company Number: None

PATIENT
  Age: 71 Year
  Sex: Male
  Weight: 90.5 kg

DRUGS (1)
  1. IOXAGLATE [Suspect]
     Indication: ANGIOGRAM
     Dates: start: 20130801, end: 20130801

REACTIONS (1)
  - Urticaria [None]
